FAERS Safety Report 6453620-7 (Version None)
Quarter: 2009Q4

REPORT INFORMATION
  Report Type: 
  Country: None (occurrence: None)
  Receive Date: 20091124
  Receipt Date: 20091110
  Transmission Date: 20100525
  Serious: Yes (Hospitalization, Other)
  Sender: FDA-Public Use
  Company Number: PHHY2009JP46420

PATIENT
  Sex: Male

DRUGS (11)
  1. VOLTAREN [Suspect]
     Indication: PYREXIA
     Dosage: 25 MG, PRN
     Route: 048
  2. VOLTAREN [Suspect]
     Dosage: 25 MG, PRN
     Route: 048
  3. VOLTAREN [Suspect]
     Dosage: 25 MG, PRN
     Route: 054
  4. TS 1 [Interacting]
     Indication: OESOPHAGEAL CARCINOMA
     Dosage: 100 MG/DAY
     Route: 048
  5. TS 1 [Interacting]
     Dosage: 100 MG/DAY
     Route: 048
  6. WARFARIN SODIUM [Interacting]
     Indication: CEREBRAL INFARCTION
     Dosage: 0.5 MG, UNK
     Route: 048
  7. WARFARIN SODIUM [Interacting]
     Dosage: 0.5 MG/DAY
     Route: 048
  8. MECOBALAMIN [Concomitant]
     Indication: NEUROPATHY PERIPHERAL
     Dosage: 1500 UG,
     Route: 048
  9. METOCLOPRAMIDE [Concomitant]
     Dosage: 15 MG, UNK
     Route: 048
  10. MAGNESIUM OXIDE [Concomitant]
     Indication: CONSTIPATION
     Dosage: 2 G, UNK
     Route: 048
  11. BUFFERIN [Concomitant]
     Dosage: 81 MG, UNK
     Route: 048

REACTIONS (11)
  - COAGULATION TIME ABNORMAL [None]
  - DRUG INTERACTION [None]
  - HYPOCOAGULABLE STATE [None]
  - LYMPHOCYTE PERCENTAGE DECREASED [None]
  - MONOCYTE PERCENTAGE INCREASED [None]
  - NEUTROPHIL PERCENTAGE INCREASED [None]
  - PLATELET COUNT DECREASED [None]
  - PROTHROMBIN TIME PROLONGED [None]
  - RED BLOOD CELL COUNT DECREASED [None]
  - THROMBOCYTOPENIA [None]
  - WHITE BLOOD CELL COUNT DECREASED [None]
